FAERS Safety Report 6273690-9 (Version None)
Quarter: 2009Q3

REPORT INFORMATION
  Report Type: 
  Country: None (occurrence: None)
  Receive Date: 20090715
  Receipt Date: 20090702
  Transmission Date: 20100115
  Serious: Yes (Hospitalization, Other)
  Sender: FDA-Public Use
  Company Number: FABR-1000882

PATIENT
  Age: 61 Year
  Sex: Male

DRUGS (1)
  1. FABRAZYME [Suspect]
     Indication: FABRY'S DISEASE
     Dosage: 70 MG, Q2W, INTRAVENOUS
     Route: 042
     Dates: start: 20010101

REACTIONS (4)
  - CARDIAC DISORDER [None]
  - GENERAL PHYSICAL HEALTH DETERIORATION [None]
  - HEADACHE [None]
  - WEIGHT DECREASED [None]
